FAERS Safety Report 4620219-4 (Version None)
Quarter: 2005Q1

REPORT INFORMATION
  Report Type: 
  Country: None (occurrence: None)
  Receive Date: 20050324
  Receipt Date: 20050317
  Transmission Date: 20050727
  Serious: Yes (Death, Life-Threatening)
  Sender: FDA-Public Use
  Company Number: 2005SE01681

PATIENT
  Age: 63 Year
  Sex: Male

DRUGS (9)
  1. DIPRIVAN [Suspect]
     Dosage: DOSES VARIES
     Dates: start: 20050216, end: 20050218
  2. GLYPRESSIN [Suspect]
     Indication: VARICES OESOPHAGEAL
     Dosage: 12 MG DAILY IV
     Route: 042
     Dates: start: 20050216, end: 20050217
  3. CIPROXIN [Concomitant]
  4. ACTRAPID HUMAN [Concomitant]
  5. FUROSEMIDE [Concomitant]
  6. LORAGA [Concomitant]
  7. BETABION [Concomitant]
  8. COMBIVENT [Concomitant]
  9. PANTOPRAZOLE SODIUM [Concomitant]

REACTIONS (24)
  - BLOOD ALBUMIN DECREASED [None]
  - BLOOD CREATININE INCREASED [None]
  - BLOOD UREA INCREASED [None]
  - COMPARTMENT SYNDROME [None]
  - EAR DISORDER [None]
  - EJECTION FRACTION ABNORMAL [None]
  - ERYTHEMA [None]
  - FEELING COLD [None]
  - GENERAL PHYSICAL HEALTH DETERIORATION [None]
  - HEPATIC FAILURE [None]
  - HYPERAEMIA [None]
  - HYPERVENTILATION [None]
  - HYPOTENSION [None]
  - JAUNDICE [None]
  - MALLORY-WEISS SYNDROME [None]
  - METABOLIC ACIDOSIS [None]
  - MULTI-ORGAN FAILURE [None]
  - PENIS DISORDER [None]
  - PERIPHERAL ISCHAEMIA [None]
  - RENAL FAILURE [None]
  - SCROTAL DISORDER [None]
  - SKIN DISCOLOURATION [None]
  - SKIN WARM [None]
  - SWOLLEN TONGUE [None]
